FAERS Safety Report 4415970-5 (Version None)
Quarter: 2004Q3

REPORT INFORMATION
  Report Type: 
  Country: None (occurrence: None)
  Receive Date: 20040804
  Receipt Date: 20040804
  Transmission Date: 20050211
  Serious: No
  Sender: FDA-Public Use
  Company Number: None

PATIENT
  Age: 41 Year
  Sex: Male
  Weight: 117.9352 kg

DRUGS (7)
  1. RIBASPHERE [Suspect]
     Indication: HEPATITIS C
     Dosage: 600 MG BID ORAL
     Route: 048
     Dates: start: 20040513, end: 20040803
  2. SERTRALINE HCL [Suspect]
     Indication: DEPRESSION
     Dosage: 200MG QD ORAL
     Route: 048
     Dates: start: 20040713, end: 20040730
  3. QUETIAPINE [Concomitant]
  4. PEG-INTERFERON [Concomitant]
  5. OMEPRAZOLE [Concomitant]
  6. ATENOLOL [Concomitant]
  7. LISINOPRIL [Concomitant]

REACTIONS (5)
  - ANXIETY [None]
  - CHEST DISCOMFORT [None]
  - DYSKINESIA [None]
  - INSOMNIA [None]
  - RESTLESSNESS [None]
